FAERS Safety Report 14709708 (Version 1)
Quarter: 2018Q2

REPORT INFORMATION
  Report Type: Report from Study
  Country: GR (occurrence: GR)
  Receive Date: 20180403
  Receipt Date: 20180403
  Transmission Date: 20180711
  Serious: Yes (Other)
  Sender: FDA-Public Use
  Company Number: GR-CELGENEUS-GRC-2016125625

PATIENT
  Age: 70 Year
  Sex: Female
  Weight: 79 kg

DRUGS (3)
  1. ABRAXANE [Suspect]
     Active Substance: PACLITAXEL
     Dosage: 260 MG/SQ.METER
     Route: 041
     Dates: start: 20160809
  2. ABRAXANE [Suspect]
     Active Substance: PACLITAXEL
     Indication: BREAST CANCER METASTATIC
     Dosage: 260 MG/SQ.METER
     Route: 041
     Dates: start: 20160515
  3. ABRAXANE [Suspect]
     Active Substance: PACLITAXEL
     Dosage: 220 MILLIGRAM/SQ.METER
     Route: 041
     Dates: start: 20160829

REACTIONS (1)
  - Accessory nerve disorder [Recovered/Resolved]

NARRATIVE: CASE EVENT DATE: 20160829
